FAERS Safety Report 8592824-4 (Version None)
Quarter: 2012Q3

REPORT INFORMATION
  Report Type: 
  Country: None (occurrence: None)
  Receive Date: 20120814
  Receipt Date: 20120801
  Transmission Date: 20120928
  Serious: Yes (Hospitalization)
  Sender: FDA-Public Use
  Company Number: JP-ROCHE-1090413

PATIENT
  Sex: Female
  Weight: 63 kg

DRUGS (12)
  1. TSUMURA GOSHAJINKIGAN [Suspect]
     Indication: PRODUCT USED FOR UNKNOWN INDICATION
     Route: 048
  2. OMEPRAZOLE [Concomitant]
     Indication: GASTROOESOPHAGEAL REFLUX DISEASE
     Route: 048
     Dates: end: 20120605
  3. PAXIL [Concomitant]
     Indication: DEPRESSION
     Route: 048
  4. LENDORMIN [Concomitant]
     Indication: INSOMNIA
     Route: 048
  5. URSO 250 [Concomitant]
     Indication: HEPATITIS C
     Route: 048
     Dates: end: 20120605
  6. ATELEC [Concomitant]
     Indication: HYPERTENSION
     Route: 048
  7. VILDAGLIPTIN [Concomitant]
     Indication: DIABETES MELLITUS
     Route: 048
  8. AMARYL [Concomitant]
     Indication: DIABETES MELLITUS
     Route: 048
  9. DEPAS [Concomitant]
     Indication: ANXIOLYTIC THERAPY
     Route: 048
  10. CO-DIOVANE [Concomitant]
     Indication: HYPERTENSION
     Route: 048
     Dates: start: 20120424, end: 20120605
  11. DIART [Concomitant]
     Indication: OEDEMA
     Route: 048
     Dates: start: 20120313, end: 20120424
  12. MIRCERA [Suspect]
     Indication: NEPHROGENIC ANAEMIA
     Route: 058
     Dates: start: 20120508, end: 20120508

REACTIONS (2)
  - BLOOD CREATINE PHOSPHOKINASE INCREASED [None]
  - ELECTROLYTE IMBALANCE [None]
